FAERS Safety Report 16569960 (Version 1)
Quarter: 2019Q3

REPORT INFORMATION
  Report Type: Spontaneous
  Country: US (occurrence: US)
  Receive Date: 20190531
  Receipt Date: 20190531
  Transmission Date: 20191004
  Serious: No
  Sender: FDA-Public Use
  Company Number: None

PATIENT

DRUGS (1)
  1. CLONIDINE PATCH [Suspect]
     Active Substance: CLONIDINE
     Route: 061

REACTIONS (3)
  - Blood pressure inadequately controlled [None]
  - Wrong technique in product usage process [None]
  - Product dose omission [None]
